FAERS Safety Report 20771344 (Version 2)
Quarter: 2022Q2

REPORT INFORMATION
  Report Type: Spontaneous
  Country: JP (occurrence: JP)
  Receive Date: 20220429
  Receipt Date: 20220517
  Transmission Date: 20220721
  Serious: Yes (Other)
  Sender: FDA-Public Use
  Company Number: JP-DSJP-DSJ-2022-114701

PATIENT
  Age: 80 Year
  Sex: Female

DRUGS (2)
  1. EDOXABAN TOSYLATE [Suspect]
     Active Substance: EDOXABAN TOSYLATE
     Indication: Product used for unknown indication
     Dosage: 30 MG, QD
     Route: 048
     Dates: end: 202204
  2. EDOXABAN TOSYLATE [Suspect]
     Active Substance: EDOXABAN TOSYLATE
     Dosage: 30 MG, QD
     Route: 048
     Dates: start: 20220424

REACTIONS (2)
  - Pancreatic neoplasm [Not Recovered/Not Resolved]
  - Prothrombin level decreased [Recovering/Resolving]

NARRATIVE: CASE EVENT DATE: 20220425
